FAERS Safety Report 15004800 (Version 1)
Quarter: 2018Q2

REPORT INFORMATION
  Report Type: Spontaneous
  Country: DE (occurrence: DE)
  Receive Date: 20180613
  Receipt Date: 20180613
  Transmission Date: 20180711
  Serious: Yes (Other)
  Sender: FDA-Public Use
  Company Number: DE-PFIZER INC-2018234877

PATIENT
  Age: 1 Day
  Sex: Male
  Weight: 2.77 kg

DRUGS (4)
  1. GEVILON [Suspect]
     Active Substance: GEMFIBROZIL
     Dosage: 600 MG, EVERY SECOND DAY
     Route: 064
  2. GEVILON [Suspect]
     Active Substance: GEMFIBROZIL
     Indication: FAMILIAL HYPERTRIGLYCERIDAEMIA
     Dosage: 600 MG, DAILY (UNTIL WEEK 39+4) (36.1. - 41.2. GESTATIONAL WEEK)
     Route: 064
     Dates: start: 20171116, end: 20171222
  3. OMACOR [Suspect]
     Active Substance: OMEGA-3-ACID ETHYL ESTERS
     Indication: FAMILIAL HYPERTRIGLYCERIDAEMIA
     Dosage: 3000 MG, 1X/DAY (9. - 41.2. GESTATIONAL WEEK)
     Route: 064
  4. FOLIC ACID. [Concomitant]
     Active Substance: FOLIC ACID
     Indication: PROPHYLAXIS OF NEURAL TUBE DEFECT
     Dosage: TRIMESTER: 1ST
     Route: 064

REACTIONS (2)
  - Small for dates baby [Recovering/Resolving]
  - Maternal exposure during pregnancy [Recovering/Resolving]

NARRATIVE: CASE EVENT DATE: 20171222
